FAERS Safety Report 18503746 (Version 1)
Quarter: 2020Q4

REPORT INFORMATION
  Report Type: Spontaneous
  Country: GB (occurrence: GB)
  Receive Date: 20201113
  Receipt Date: 20201113
  Transmission Date: 20210114
  Serious: Yes (Death)
  Sender: FDA-Public Use
  Company Number: GB-VERTEX PHARMACEUTICALS-2020-021980

PATIENT
  Age: 17 Year
  Sex: Female
  Weight: 40 kg

DRUGS (6)
  1. SYMKEVI [Suspect]
     Active Substance: IVACAFTOR\TEZACAFTOR
     Indication: CYSTIC FIBROSIS LUNG
     Dosage: 100MG TEZACAFTOR/ 150MG IVACAFTOR, UNKNOWN DOSAGE AND FREQUENCY
     Route: 048
     Dates: start: 20200905, end: 20200910
  2. SYMKEVI [Suspect]
     Active Substance: IVACAFTOR\TEZACAFTOR
     Indication: CYSTIC FIBROSIS
  3. KALYDECO [Suspect]
     Active Substance: IVACAFTOR
     Indication: CYSTIC FIBROSIS
     Dosage: IVACAFTOR, AT NIGHT
     Route: 048
     Dates: start: 20200907, end: 20200911
  4. KAFTRIO [Suspect]
     Active Substance: ELEXACAFTOR\IVACAFTOR\TEZACAFTOR
     Indication: CYSTIC FIBROSIS
     Dosage: 75MG IVACAFTOR/ 50MG TEZACAFTOR/ 100MG ELEXACAFTOR, EACH MORNING
     Route: 048
     Dates: start: 20200910, end: 20200911
  5. METHYLPREDNISOLONE. [Concomitant]
     Active Substance: METHYLPREDNISOLONE
  6. NITRIC OXIDE. [Concomitant]
     Active Substance: NITRIC OXIDE
     Route: 055

REACTIONS (7)
  - Brain oedema [Fatal]
  - Mean arterial pressure increased [Fatal]
  - Mydriasis [Fatal]
  - Pulmonary haemorrhage [Fatal]
  - Subarachnoid haemorrhage [Fatal]
  - Cerebral ischaemia [Fatal]
  - Pneumothorax [Fatal]

NARRATIVE: CASE EVENT DATE: 20200910
